FAERS Safety Report 20608349 (Version 1)
Quarter: 2022Q1

REPORT INFORMATION
  Report Type: Spontaneous
  Country: BR (occurrence: BR)
  Receive Date: 20220317
  Receipt Date: 20220317
  Transmission Date: 20220423
  Serious: Yes (Other)
  Sender: FDA-Public Use
  Company Number: BR-PFIZER INC-202101848873

PATIENT
  Age: 7 Year
  Sex: Female

DRUGS (1)
  1. TALIGLUCERASE ALFA [Suspect]
     Active Substance: TALIGLUCERASE ALFA
     Indication: Gaucher^s disease
     Dosage: 60 IU/KG
     Route: 042
     Dates: start: 202002

REACTIONS (3)
  - Osteonecrosis [Unknown]
  - Condition aggravated [Unknown]
  - Treatment failure [Unknown]

NARRATIVE: CASE EVENT DATE: 20210101
